FAERS Safety Report 10185713 (Version 1)
Quarter: 2014Q2

REPORT INFORMATION
  Report Type: Spontaneous
  Country: US (occurrence: US)
  Receive Date: 20140521
  Receipt Date: 20140521
  Transmission Date: 20141212
  Serious: No
  Sender: FDA-Public Use
  Company Number: US-GILEAD-2014-0102205

PATIENT
  Age: 63 Year
  Sex: Male

DRUGS (13)
  1. SOVALDI [Suspect]
     Indication: PRODUCT USED FOR UNKNOWN INDICATION
     Dosage: 400 MG, QD
     Route: 065
     Dates: start: 20140404
  2. METFORMIN [Concomitant]
  3. FENOFIBRATE [Concomitant]
  4. IRBESARTAN AND HYDROCHLOROTHIAZIDE [Concomitant]
  5. VICTOZA [Concomitant]
  6. LEVEMIR [Concomitant]
  7. PIOGLITAZONE [Concomitant]
  8. OMEGA 3                            /01333901/ [Concomitant]
  9. NUTRA LIFE MILK THISTLE 12,000 COMPLEX [Concomitant]
  10. ASPIRIN [Concomitant]
  11. DOVONEX [Concomitant]
  12. CLOBETASOL [Concomitant]
  13. VITAMIN D3 [Concomitant]

REACTIONS (4)
  - Fatigue [Unknown]
  - Fatigue [Unknown]
  - Burning sensation [Unknown]
  - Insomnia [Unknown]
